FAERS Safety Report 10414303 (Version 2)
Quarter: 2014Q3

REPORT INFORMATION
  Report Type: Spontaneous
  Country: JP (occurrence: JP)
  Receive Date: 20140828
  Receipt Date: 20140828
  Transmission Date: 20150326
  Serious: Yes (Other)
  Sender: FDA-Public Use
  Company Number: PHHY2014JP041480

PATIENT
  Age: 79 Year
  Sex: Female

DRUGS (5)
  1. ROPINIROLE. [Suspect]
     Active Substance: ROPINIROLE
     Dosage: 3 MG, UNK
  2. ZONISAMIDE. [Suspect]
     Active Substance: ZONISAMIDE
     Dosage: 50 MG, UNK
  3. LEVODOPA [Concomitant]
     Active Substance: LEVODOPA
     Dosage: 400 MG, UNK
  4. QUETIAPINE [Concomitant]
     Active Substance: QUETIAPINE
     Indication: HALLUCINATION, VISUAL
     Dosage: 25 MG, QD
  5. SELEGILINE [Suspect]
     Active Substance: SELEGILINE
     Dosage: 7.5 MG, UNK

REACTIONS (1)
  - Jealous delusion [Recovered/Resolved]
